FAERS Safety Report 9606424 (Version 2)
Quarter: 2013Q4

REPORT INFORMATION
  Report Type: Spontaneous
  Country: SE (occurrence: SE)
  Receive Date: 20131008
  Receipt Date: 20131008
  Transmission Date: 20140711
  Serious: Yes (Hospitalization)
  Sender: FDA-Public Use
  Company Number: SE-ROCHE-1054531

PATIENT
  Age: 31 Year
  Sex: Female

DRUGS (4)
  1. COPEGUS [Suspect]
     Indication: HEPATITIS
     Route: 048
     Dates: start: 20101216, end: 20110312
  2. PEGASYS [Suspect]
     Indication: HEPATITIS
     Route: 058
     Dates: start: 20101216, end: 20110312
  3. ATARAX [Concomitant]
  4. XANOR [Concomitant]

REACTIONS (5)
  - Thyroiditis [Not Recovered/Not Resolved]
  - Arthralgia [Not Recovered/Not Resolved]
  - Alopecia [Not Recovered/Not Resolved]
  - Fatigue [Not Recovered/Not Resolved]
  - Laboratory test abnormal [Not Recovered/Not Resolved]
